FAERS Safety Report 11784225 (Version 1)
Quarter: 2015Q4

REPORT INFORMATION
  Report Type: Report from Study
  Country: ZA (occurrence: ZA)
  Receive Date: 20151128
  Receipt Date: 20151128
  Transmission Date: 20160305
  Serious: Yes (Death, Other)
  Sender: FDA-Public Use
  Company Number: PHHY2015ZA155849

PATIENT
  Age: 81 Year
  Sex: Male

DRUGS (1)
  1. ACLASTA [Suspect]
     Active Substance: ZOLEDRONIC ACID
     Indication: OSTEOPOROSIS
     Dosage: 5 MG,(5 MG/100 ML, ) Q12MO
     Route: 065
     Dates: start: 2014

REACTIONS (2)
  - Pneumonia [Fatal]
  - Lung neoplasm malignant [Unknown]
